FAERS Safety Report 10385842 (Version 2)
Quarter: 2015Q3

REPORT INFORMATION
  Report Type: Report from Study
  Country: US (occurrence: US)
  Receive Date: 20140814
  Receipt Date: 20150727
  Transmission Date: 20151125
  Serious: Yes (Other)
  Sender: FDA-Public Use
  Company Number: US-GILEAD-2014-0111541

PATIENT
  Age: 62 Year
  Sex: Female

DRUGS (1)
  1. RANOLAZINE [Suspect]
     Active Substance: RANOLAZINE
     Indication: ANGINA PECTORIS
     Dosage: 1000 MG, UNK
     Route: 048

REACTIONS (6)
  - Cardiac disorder [Unknown]
  - Vascular graft [Unknown]
  - Chest pain [Unknown]
  - Unevaluable event [Unknown]
  - Stent placement [Unknown]
  - Gastrooesophageal reflux disease [Unknown]
